FAERS Safety Report 10420954 (Version 1)
Quarter: 2014Q3

REPORT INFORMATION
  Report Type: Spontaneous
  Country: US (occurrence: None)
  Receive Date: 20140829
  Receipt Date: 20140829
  Transmission Date: 20150326
  Serious: Yes (Hospitalization)
  Sender: FDA-Public Use
  Company Number: None

PATIENT
  Age: 53 Year
  Sex: Male
  Weight: 104.5 kg

DRUGS (2)
  1. METHADONE [Suspect]
     Active Substance: METHADONE HYDROCHLORIDE
     Indication: PAIN
     Route: 048
     Dates: start: 20100225, end: 20140729
  2. MORPHINE [Suspect]
     Active Substance: MORPHINE
     Indication: PAIN
     Dates: start: 20100401, end: 20140721

REACTIONS (7)
  - Hallucination [None]
  - Blood creatinine increased [None]
  - Confusional state [None]
  - Hypotension [None]
  - Unevaluable event [None]
  - Therapeutic agent urine positive [None]
  - Drug abuse [None]

NARRATIVE: CASE EVENT DATE: 20140721
